FAERS Safety Report 9447345 (Version 1)
Quarter: 2013Q3

REPORT INFORMATION
  Report Type: Spontaneous
  Country: US (occurrence: US)
  Receive Date: 20130808
  Receipt Date: 20130808
  Transmission Date: 20140515
  Serious: No
  Sender: FDA-Public Use
  Company Number: US-009507513-1308USA001281

PATIENT
  Sex: Female
  Weight: 95.4 kg

DRUGS (1)
  1. NEXPLANON [Suspect]
     Indication: CONTRACEPTION
     Dosage: 1 DF
     Route: 059
     Dates: start: 20130719

REACTIONS (4)
  - Implant site pruritus [Not Recovered/Not Resolved]
  - Implant site rash [Not Recovered/Not Resolved]
  - Implant site erythema [Not Recovered/Not Resolved]
  - Therapeutic response unexpected [Unknown]
